FAERS Safety Report 10236228 (Version 1)
Quarter: 2014Q2

REPORT INFORMATION
  Report Type: Spontaneous
  Country: HR (occurrence: HR)
  Receive Date: 20140613
  Receipt Date: 20140613
  Transmission Date: 20141212
  Serious: Yes (Life-Threatening)
  Sender: FDA-Public Use
  Company Number: HR-ACTAVIS-2014-12299

PATIENT
  Age: 50 Year
  Sex: Female
  Weight: 77 kg

DRUGS (2)
  1. DOCETAXEL ACTAVIS [Suspect]
     Indication: LUNG NEOPLASM MALIGNANT
     Dosage: 140 MG, DAILY
     Route: 042
     Dates: start: 20140508, end: 20140508
  2. DOCETAXEL ACTAVIS [Suspect]
     Dosage: 140 MG, DAILY
     Route: 042
     Dates: start: 20140508, end: 20140508

REACTIONS (4)
  - Loss of consciousness [Recovered/Resolved]
  - Abdominal pain upper [Recovered/Resolved]
  - Apnoea [Recovered/Resolved]
  - Back pain [Recovered/Resolved]
